FAERS Safety Report 18810537 (Version 2)
Quarter: 2021Q1

REPORT INFORMATION
  Report Type: Spontaneous
  Country: CA (occurrence: CA)
  Receive Date: 20210129
  Receipt Date: 20210209
  Transmission Date: 20210419
  Serious: Yes (Life-Threatening, Other)
  Sender: FDA-Public Use
  Company Number: CA-PURDUE-USA-2020-0201426

PATIENT
  Sex: Male

DRUGS (3)
  1. OXYCODONE HYDROCHLORIDE. [Suspect]
     Active Substance: OXYCODONE HYDROCHLORIDE
     Indication: PRODUCT USED FOR UNKNOWN INDICATION
     Dosage: UNK
     Route: 048
  2. OXYCODONE HYDROCHLORIDE. [Suspect]
     Active Substance: OXYCODONE HYDROCHLORIDE
     Indication: PRODUCT USED FOR UNKNOWN INDICATION
     Dosage: UNK
     Route: 048
  3. OXYCONTIN [Suspect]
     Active Substance: OXYCODONE HYDROCHLORIDE
     Indication: PRODUCT USED FOR UNKNOWN INDICATION
     Dosage: UNK
     Route: 048

REACTIONS (17)
  - Somnolence [Unknown]
  - Suicidal ideation [Unknown]
  - Drug dependence [Unknown]
  - Heart rate irregular [Unknown]
  - Irritability [Unknown]
  - Insomnia [Unknown]
  - Drug ineffective [Unknown]
  - Nausea [Unknown]
  - Nasopharyngitis [Unknown]
  - Libido decreased [Unknown]
  - Agitation [Unknown]
  - Confusional state [Unknown]
  - Pain [Unknown]
  - Stress [Unknown]
  - Dyspnoea [Unknown]
  - Cold sweat [Unknown]
  - Withdrawal syndrome [Unknown]
